FAERS Safety Report 6110772-6 (Version None)
Quarter: 2009Q1

REPORT INFORMATION
  Report Type: 
  Country: None (occurrence: None)
  Receive Date: 20090311
  Receipt Date: 20090224
  Transmission Date: 20090719
  Serious: Yes (Other)
  Sender: FDA-Public Use
  Company Number: PHBS2009FR01033

PATIENT
  Age: 43 Year
  Sex: Female

DRUGS (2)
  1. CYCLOSPORINE [Suspect]
     Indication: CUTANEOUS SARCOIDOSIS
  2. INFLIXIMAB [Concomitant]

REACTIONS (7)
  - DISEASE PROGRESSION [None]
  - DRUG INEFFECTIVE [None]
  - GRANULOMA [None]
  - INFLAMMATORY PSEUDOTUMOUR [None]
  - LYMPHADENOPATHY [None]
  - MYCOBACTERIUM AVIUM COMPLEX INFECTION [None]
  - SKIN LESION [None]
